FAERS Safety Report 10409999 (Version 1)
Quarter: 2014Q3

REPORT INFORMATION
  Report Type: Spontaneous
  Country: TW (occurrence: TW)
  Receive Date: 20140826
  Receipt Date: 20140826
  Transmission Date: 20150326
  Serious: Yes (Life-Threatening, Other)
  Sender: FDA-Public Use
  Company Number: TW-ELI_LILLY_AND_COMPANY-TW201408007928

PATIENT
  Age: 58 Year
  Sex: Female
  Weight: 34 kg

DRUGS (6)
  1. EURODIN                            /00425901/ [Concomitant]
     Active Substance: ESTAZOLAM
     Dosage: UNK, UNKNOWN
     Route: 065
  2. HALOPERIDOL. [Suspect]
     Active Substance: HALOPERIDOL
     Indication: PSYCHOTIC DISORDER
     Dosage: UNK
     Route: 030
     Dates: start: 20140727, end: 20140812
  3. AMOXICILLIN. [Concomitant]
     Active Substance: AMOXICILLIN
     Dosage: UNK, UNKNOWN
     Route: 065
  4. ZYPREXA ZYDIS [Suspect]
     Active Substance: OLANZAPINE
     Indication: PSYCHOTIC DISORDER
     Dosage: 5 MG, QD
     Route: 048
     Dates: start: 20140723, end: 20140812
  5. DEPAKINE CHRONO [Concomitant]
     Active Substance: VALPROATE SODIUM
     Dosage: UNK, UNKNOWN
     Route: 065
  6. SENNOSIDE                          /00571902/ [Concomitant]
     Active Substance: SENNOSIDE A\SENNOSIDE B\SENNOSIDES
     Dosage: UNK, UNKNOWN
     Route: 065

REACTIONS (10)
  - Pleural effusion [Unknown]
  - Muscle rigidity [Recovering/Resolving]
  - Tremor [Unknown]
  - Cerebral atrophy [Unknown]
  - Neuroleptic malignant syndrome [Unknown]
  - Altered state of consciousness [Unknown]
  - Hypercapnia [Unknown]
  - Pyrexia [Recovered/Resolved]
  - Respiratory failure [Unknown]
  - Convulsion [Unknown]

NARRATIVE: CASE EVENT DATE: 20140812
